FAERS Safety Report 5917915-5 (Version None)
Quarter: 2008Q4

REPORT INFORMATION
  Report Type: 
  Country: None (occurrence: None)
  Receive Date: 20081014
  Receipt Date: 20081003
  Transmission Date: 20090506
  Serious: Yes (Death, Hospitalization)
  Sender: FDA-Public Use
  Company Number: US-PFIZER INC-2007049246

PATIENT
  Sex: Female
  Weight: 43.2 kg

DRUGS (9)
  1. IRINOTECAN HCL [Suspect]
     Indication: GASTRIC CANCER
     Route: 042
     Dates: start: 20070418, end: 20070418
  2. IRINOTECAN HCL [Suspect]
     Route: 042
     Dates: start: 20070509, end: 20070606
  3. AG-013,736 [Suspect]
     Indication: GASTRIC CANCER
     Route: 048
     Dates: start: 20070420, end: 20070616
  4. FLUOROURACIL [Suspect]
     Indication: GASTRIC CANCER
     Dosage: TEXT:650MG BOLUS + 1980MG X2 DAYS INFUSION
     Route: 042
     Dates: start: 20070418, end: 20070418
  5. FLUOROURACIL [Suspect]
     Dosage: TEXT:500MG BOLUS + 1525MG X2 DAYS INFUSION
     Route: 042
     Dates: start: 20070509, end: 20070606
  6. LEUCOVORIN CALCIUM [Suspect]
     Indication: GASTRIC CANCER
     Route: 042
     Dates: start: 20070418, end: 20070606
  7. LORTAB [Concomitant]
     Route: 048
     Dates: start: 20070409
  8. KYTRIL [Concomitant]
     Route: 048
     Dates: start: 20070511
  9. OCEAN NASAL SPRAY [Concomitant]
     Route: 045
     Dates: start: 20070521

REACTIONS (6)
  - CARDIAC ENZYMES INCREASED [None]
  - DEATH [None]
  - HYPOKALAEMIA [None]
  - HYPOTENSION [None]
  - LEUKOPENIA [None]
  - METABOLIC ACIDOSIS [None]
